FAERS Safety Report 18544586 (Version 1)
Quarter: 2020Q4

REPORT INFORMATION
  Report Type: Report from Study
  Country: US (occurrence: US)
  Receive Date: 20201125
  Receipt Date: 20201125
  Transmission Date: 20210114
  Serious: Yes (Other)
  Sender: FDA-Public Use
  Company Number: NVSC2020US309383

PATIENT
  Sex: Female

DRUGS (1)
  1. GILENYA [Suspect]
     Active Substance: FINGOLIMOD HYDROCHLORIDE
     Indication: RELAPSING-REMITTING MULTIPLE SCLEROSIS
     Dosage: UNK, QD
     Route: 048
     Dates: start: 20110601, end: 20200831

REACTIONS (9)
  - Central nervous system lesion [Unknown]
  - Memory impairment [Unknown]
  - Balance disorder [Unknown]
  - Epilepsy [Recovered/Resolved]
  - Thyroid cancer [Recovered/Resolved]
  - Temperature intolerance [Unknown]
  - Gait disturbance [Unknown]
  - Multiple sclerosis relapse [Recovered/Resolved]
  - Tremor [Unknown]

NARRATIVE: CASE EVENT DATE: 2012
